FAERS Safety Report 17003699 (Version 1)
Quarter: 2019Q4

REPORT INFORMATION
  Report Type: Spontaneous
  Country: ES (occurrence: ES)
  Receive Date: 20191107
  Receipt Date: 20191107
  Transmission Date: 20200122
  Serious: Yes (Other)
  Sender: FDA-Public Use
  Company Number: ES-TEVA-2019-ES-1132515

PATIENT
  Age: 45 Year
  Sex: Female

DRUGS (3)
  1. ATORVASTATINA 20 MG 28 COMPRIMIDOS [Concomitant]
     Dosage: 0-0-1, 20 MG PER DAY
     Dates: start: 20190408
  2. ESCITALOPRAM 15 MG 56 COMPRIMIDOS [Suspect]
     Active Substance: ESCITALOPRAM OXALATE
     Indication: BEREAVEMENT
     Dosage: 15 MG PER DAY
     Route: 048
     Dates: start: 20190925, end: 2019
  3. TRANKIMAZIN 0,25 MG COMPRIMIDOS , 30 COMPRIMIDOS [Concomitant]
     Dosage: 1-1-1, 0.25 MG PER 8 HRS
     Dates: start: 20190408

REACTIONS (3)
  - Tongue discolouration [Unknown]
  - Depressed mood [Unknown]
  - Glossitis [Unknown]

NARRATIVE: CASE EVENT DATE: 2019
